FAERS Safety Report 4900334-8 (Version None)
Quarter: 2006Q1

REPORT INFORMATION
  Report Type: 
  Country: None (occurrence: None)
  Receive Date: 20060203
  Receipt Date: 20051205
  Transmission Date: 20060701
  Serious: Yes (Death)
  Sender: FDA-Public Use
  Company Number: RU-GLAXOSMITHKLINE-B0403208A

PATIENT
  Age: 2 Year
  Sex: Male
  Weight: 2.8 kg

DRUGS (7)
  1. SERETIDE [Suspect]
     Route: 055
     Dates: start: 20030101
  2. PULMICORT [Concomitant]
     Route: 055
  3. PREDNISOLONE [Concomitant]
  4. VENTOLIN [Concomitant]
     Route: 055
  5. FLIXOTIDE [Concomitant]
     Route: 055
  6. EUPHYLLIN [Concomitant]
  7. ANTIHISTAMINES [Concomitant]

REACTIONS (44)
  - ADRENAL CORTEX DYSPLASIA [None]
  - ADRENAL INSUFFICIENCY [None]
  - ALVEOLITIS [None]
  - ASTHMA [None]
  - ATELECTASIS [None]
  - BRAIN OEDEMA [None]
  - BRONCHIAL DYSPLASIA [None]
  - BRONCHIAL OBSTRUCTION [None]
  - BRONCHOSTENOSIS [None]
  - CARDIAC FAILURE ACUTE [None]
  - CARDIAC HYPERTROPHY [None]
  - CARDIOMEGALY [None]
  - CARDIOMYOPATHY [None]
  - CYANOSIS [None]
  - CYANOSIS CENTRAL [None]
  - DIAPEDESIS [None]
  - EMPHYSEMA [None]
  - ENTEROCOCCAL INFECTION [None]
  - ESCHERICHIA INFECTION [None]
  - HAEMOPTYSIS [None]
  - HEPATIC ATROPHY [None]
  - HEPATIC NECROSIS [None]
  - HYDROTHORAX [None]
  - HYPERADRENALISM [None]
  - HYPERVOLAEMIA [None]
  - LARYNGOTRACHEAL OEDEMA [None]
  - LUNG INFILTRATION [None]
  - LYMPHOCYTIC INFILTRATION [None]
  - MENINGEAL DISORDER [None]
  - MUCOSAL EXFOLIATION [None]
  - MYOCARDIAL INFARCTION [None]
  - MYOCARDIAL OEDEMA [None]
  - OEDEMA DUE TO HEPATIC DISEASE [None]
  - PALLOR [None]
  - PARATRACHEAL LYMPHADENOPATHY [None]
  - PULMONARY HAEMOSIDEROSIS [None]
  - PULMONARY HYPERTENSION [None]
  - PULMONARY NECROSIS [None]
  - RENAL ATROPHY [None]
  - RENAL DISORDER [None]
  - RENAL NECROSIS [None]
  - RESPIRATORY TRACT INFECTION VIRAL [None]
  - RIGHT VENTRICULAR FAILURE [None]
  - THYMUS HYPERTROPHY [None]
